FAERS Safety Report 9863323 (Version 1)
Quarter: 2014Q1

REPORT INFORMATION
  Report Type: Spontaneous
  Country: US (occurrence: US)
  Receive Date: 20140203
  Receipt Date: 20140203
  Transmission Date: 20141002
  Serious: No
  Sender: FDA-Public Use
  Company Number: US-PFIZER INC-2014028388

PATIENT
  Age: 59 Year
  Sex: Female
  Weight: 104 kg

DRUGS (1)
  1. CELEBREX [Suspect]
     Indication: ARTHRALGIA
     Dosage: 200 MG, 1X/DAY
     Dates: start: 201311

REACTIONS (2)
  - Skin reaction [Not Recovered/Not Resolved]
  - Burning sensation [Not Recovered/Not Resolved]
